FAERS Safety Report 19698436 (Version 2)
Quarter: 2021Q3

REPORT INFORMATION
  Report Type: Report from Study
  Country: None (occurrence: US)
  Receive Date: 20210813
  Receipt Date: 20210818
  Transmission Date: 20211014
  Serious: Yes (Disabling, Other)
  Sender: FDA-Public Use
  Company Number: US-ABBVIE-21K-163-3778863-00

PATIENT
  Age: 63 Year
  Sex: Female
  Weight: 118.49 kg

DRUGS (31)
  1. MELOXICAM. [Concomitant]
     Active Substance: MELOXICAM
     Indication: PAIN
     Route: 048
  2. DOXEPIN [Concomitant]
     Active Substance: DOXEPIN
     Indication: SLEEP DISORDER
     Dosage: HALF STRENTH
     Route: 048
  3. SAFFRON [Concomitant]
     Active Substance: SAFFRON
     Indication: AGE-RELATED MACULAR DEGENERATION
     Route: 048
  4. ARMOUR THYROID [Concomitant]
     Active Substance: THYROID, PORCINE
     Indication: THYROID DISORDER
     Route: 048
  5. SPIRONOLACTONE. [Concomitant]
     Active Substance: SPIRONOLACTONE
     Indication: PERIPHERAL SWELLING
     Route: 048
  6. INCRUSE ELLIPTA [Concomitant]
     Active Substance: UMECLIDINIUM BROMIDE
     Indication: ASTHMA
     Route: 055
  7. PRIMROSE OIL [Concomitant]
     Indication: AGE-RELATED MACULAR DEGENERATION
     Route: 048
  8. LUTEIN [Concomitant]
     Active Substance: LUTEIN
     Indication: AGE-RELATED MACULAR DEGENERATION
     Route: 048
  9. ASTAXANTHIN [Concomitant]
     Active Substance: ASTAXANTHIN
     Indication: AGE-RELATED MACULAR DEGENERATION
     Route: 048
  10. CLONIDINE. [Concomitant]
     Active Substance: CLONIDINE
     Indication: HYPERTENSION
     Route: 048
  11. PREGABALIN. [Concomitant]
     Active Substance: PREGABALIN
     Indication: NEURALGIA
     Route: 048
  12. PFIZER?BIONTECH COVID?19 VACCINE [Concomitant]
     Active Substance: TOZINAMERAN
     Route: 030
     Dates: start: 20210331, end: 20210331
  13. FLUCONAZOLE. [Concomitant]
     Active Substance: FLUCONAZOLE
     Indication: GASTROINTESTINAL FUNGAL INFECTION
     Route: 048
  14. BREO ELLIPTA [Concomitant]
     Active Substance: FLUTICASONE FUROATE\VILANTEROL TRIFENATATE
     Indication: ASTHMA
     Dosage: 100 MCG OR 25 MICROGRAM
     Route: 055
  15. LUTEIN [Concomitant]
     Active Substance: LUTEIN
     Indication: AGE-RELATED MACULAR DEGENERATION
  16. CLONAZEPAM. [Concomitant]
     Active Substance: CLONAZEPAM
     Indication: SLEEP DISORDER
     Dosage: HALF STRENGTH
  17. ADDERALL [Concomitant]
     Active Substance: AMPHETAMINE ASPARTATE\AMPHETAMINE SULFATE\DEXTROAMPHETAMINE SACCHARATE\DEXTROAMPHETAMINE SULFATE
     Indication: ATTENTION DEFICIT HYPERACTIVITY DISORDER
     Dosage: EXTENDED RELEASE
     Route: 048
  18. BACLOFEN. [Concomitant]
     Active Substance: BACLOFEN
     Indication: MUSCLE SPASMS
     Route: 048
  19. HUMIRA [Suspect]
     Active Substance: ADALIMUMAB
     Indication: RHEUMATOID ARTHRITIS
     Route: 058
     Dates: start: 202009
  20. CORTISONE [Suspect]
     Active Substance: CORTISONE
     Indication: PRODUCT USED FOR UNKNOWN INDICATION
     Route: 065
  21. NEUPRO [Concomitant]
     Active Substance: ROTIGOTINE
     Indication: RESTLESS LEGS SYNDROME
     Dosage: SENTARA
  22. MONTELUKAST SODIUM. [Concomitant]
     Active Substance: MONTELUKAST SODIUM
     Indication: ASTHMA
     Dosage: HALF STRENGTH
     Route: 048
  23. ASTAXANTHIN [Concomitant]
     Active Substance: ASTAXANTHIN
     Indication: AGE-RELATED MACULAR DEGENERATION
  24. PFIZER?BIONTECH COVID?19 VACCINE [Concomitant]
     Active Substance: TOZINAMERAN
     Indication: COVID-19 IMMUNISATION
     Route: 030
     Dates: start: 20210310, end: 20210310
  25. ESOMEPRAZOLE. [Concomitant]
     Active Substance: ESOMEPRAZOLE MAGNESIUM
     Indication: GASTROOESOPHAGEAL REFLUX DISEASE
     Route: 048
  26. VITAMIN D3 [Concomitant]
     Active Substance: CHOLECALCIFEROL
     Indication: VITAMIN D DEFICIENCY
     Dosage: HALF STRENGTH
     Route: 048
  27. PRIMROSE OIL [Concomitant]
     Indication: AGE-RELATED MACULAR DEGENERATION
  28. SAFFRON [Concomitant]
     Active Substance: SAFFRON
     Indication: AGE-RELATED MACULAR DEGENERATION
  29. RECLAST [Concomitant]
     Active Substance: ZOLEDRONIC ACID
     Indication: BONE DISORDER
  30. SPIRONOLACTONE. [Concomitant]
     Active Substance: SPIRONOLACTONE
     Indication: HYPERTENSION
  31. NEXIUM [Concomitant]
     Active Substance: ESOMEPRAZOLE MAGNESIUM
     Indication: PRODUCT USED FOR UNKNOWN INDICATION

REACTIONS (28)
  - Hypoaesthesia [Unknown]
  - Pain in extremity [Unknown]
  - Muscle spasms [Not Recovered/Not Resolved]
  - Clavicle fracture [Unknown]
  - Hip fracture [Unknown]
  - Joint range of motion decreased [Not Recovered/Not Resolved]
  - Osteoarthritis [Unknown]
  - Rash [Unknown]
  - Arthralgia [Not Recovered/Not Resolved]
  - Ilium fracture [Unknown]
  - Rib fracture [Unknown]
  - Osteosclerosis [Unknown]
  - Drug ineffective [Unknown]
  - Fracture nonunion [Unknown]
  - Osteonecrosis [Unknown]
  - Exostosis [Unknown]
  - Osteoporosis [Not Recovered/Not Resolved]
  - Back pain [Unknown]
  - Spinal compression fracture [Unknown]
  - Gait inability [Not Recovered/Not Resolved]
  - Joint range of motion decreased [Unknown]
  - Osteopenia [Not Recovered/Not Resolved]
  - Lower limb fracture [Unknown]
  - Chest pain [Unknown]
  - Light chain analysis abnormal [Unknown]
  - Pathological fracture [Not Recovered/Not Resolved]
  - Multiple fractures [Unknown]
  - Acetabulum fracture [Unknown]

NARRATIVE: CASE EVENT DATE: 202012
